FAERS Safety Report 7690891-3 (Version None)
Quarter: 2011Q3

REPORT INFORMATION
  Report Type: 
  Country: None (occurrence: None)
  Receive Date: 20110818
  Receipt Date: 20110818
  Transmission Date: 20111222
  Serious: Yes (Other)
  Sender: FDA-Public Use
  Company Number: None

PATIENT
  Age: 60 Year
  Sex: Female
  Weight: 81.646 kg

DRUGS (1)
  1. MELOXICAM [Suspect]
     Indication: ARTHRITIS
     Dosage: I TABLET
     Dates: start: 20080602, end: 20080616

REACTIONS (3)
  - RASH [None]
  - ABDOMINAL DISCOMFORT [None]
  - PRODUCT SUBSTITUTION ISSUE [None]
